FAERS Safety Report 11846759 (Version 2)
Quarter: 2016Q1

REPORT INFORMATION
  Report Type: Spontaneous
  Country: US (occurrence: US)
  Receive Date: 20151217
  Receipt Date: 20160118
  Transmission Date: 20160526
  Serious: Yes (Other)
  Sender: FDA-Public Use
  Company Number: US-UNITED THERAPEUTICS-UNT-2015-011561

PATIENT
  Age: 64 Year
  Sex: Female
  Weight: 102.4 kg

DRUGS (5)
  1. REMODULIN [Suspect]
     Active Substance: TREPROSTINIL
     Dosage: 0.1167 ?G/KG, CONTINUING
     Route: 058
  2. REMODULIN [Suspect]
     Active Substance: TREPROSTINIL
     Dosage: 0.1167 ?G/KG, CONTINUING
     Route: 058
  3. COUMADIN [Suspect]
     Active Substance: WARFARIN SODIUM
     Indication: PRODUCT USED FOR UNKNOWN INDICATION
  4. REMODULIN [Suspect]
     Active Substance: TREPROSTINIL
     Indication: PULMONARY ARTERIAL HYPERTENSION
     Dosage: 0.1167  ?G/KG, CONTINUING
     Route: 058
     Dates: start: 20150408
  5. REVATIO [Concomitant]
     Active Substance: SILDENAFIL CITRATE
     Indication: PRODUCT USED FOR UNKNOWN INDICATION

REACTIONS (9)
  - Pain [Unknown]
  - Pneumonia [Unknown]
  - Infusion site oedema [Unknown]
  - Infusion site haematoma [Recovered/Resolved]
  - Sepsis [Unknown]
  - Infusion site erythema [Unknown]
  - Infusion site nodule [Recovered/Resolved]
  - Infusion site pustule [Unknown]
  - Infusion site pain [Unknown]

NARRATIVE: CASE EVENT DATE: 201509
